FAERS Safety Report 8822826 (Version 2)
Quarter: 2012Q4

REPORT INFORMATION
  Report Type: Report from Study
  Country: JP (occurrence: JP)
  Receive Date: 20121003
  Receipt Date: 20121113
  Transmission Date: 20130627
  Serious: Yes (Other)
  Sender: FDA-Public Use
  Company Number: JP-MERCK-1209JPN011238

PATIENT
  Age: 65 Year
  Sex: Female
  Weight: 65 kg

DRUGS (13)
  1. PEGINTRON [Suspect]
     Indication: HEPATITIS C
     Dosage: 1.5 Microgram per kilogram, UNK
     Route: 058
     Dates: start: 20120713, end: 20120816
  2. PEGINTRON [Suspect]
     Dosage: 1.2 Microgram per kilogram, UNK
     Route: 058
     Dates: start: 20120817, end: 20120823
  3. PEGINTRON [Suspect]
     Dosage: 0.6 Microgram per kilogram, UNK
     Route: 058
     Dates: start: 20120824, end: 20120830
  4. PEGINTRON [Suspect]
     Dosage: 0.6 Microgram per kilogram, qw
     Route: 058
     Dates: start: 20120914, end: 20120920
  5. PEGINTRON [Suspect]
     Dosage: 0.9 Microgram per kilogram, qw
     Route: 058
     Dates: start: 20120921
  6. REBETOL [Suspect]
     Indication: HEPATITIS C
     Dosage: 600 mg, UNK
     Route: 048
     Dates: start: 20120713, end: 20120816
  7. REBETOL [Suspect]
     Dosage: 400 mg, UNK
     Route: 048
     Dates: start: 20120817, end: 20120823
  8. REBETOL [Suspect]
     Dosage: 200 mg, qd
     Route: 048
     Dates: start: 20120914, end: 20120927
  9. REBETOL [Suspect]
     Dosage: 400 mg, qd
     Route: 048
     Dates: start: 20120928
  10. TELAVIC [Suspect]
     Indication: HEPATITIS C
     Dosage: 1500 mg, qd
     Route: 048
     Dates: start: 20120713, end: 20120816
  11. TELAVIC [Suspect]
     Dosage: 1000 mg, qd
     Route: 048
     Dates: start: 20120817, end: 20120823
  12. ALLEGRA [Concomitant]
     Indication: PROPHYLAXIS
     Dosage: 120 mg, UNK
     Route: 048
     Dates: start: 20120713
  13. ALOSITOL [Concomitant]
     Indication: HYPERURICAEMIA
     Dosage: 200 mg, UNK
     Route: 048
     Dates: start: 20120717

REACTIONS (2)
  - Renal disorder [Recovering/Resolving]
  - Haemoglobin decreased [Recovered/Resolved]
